FAERS Safety Report 9316460 (Version 1)
Quarter: 2013Q2

REPORT INFORMATION
  Report Type: Spontaneous
  Country: US (occurrence: US)
  Receive Date: 20130530
  Receipt Date: 20130530
  Transmission Date: 20140414
  Serious: Yes (Hospitalization, Other)
  Sender: FDA-Public Use
  Company Number: US-JNJFOC-20130512639

PATIENT
  Age: 63 Year
  Sex: Male
  Weight: 72.58 kg

DRUGS (4)
  1. DURAGESIC [Suspect]
     Indication: BACK PAIN
     Route: 062
  2. VICODIN [Concomitant]
     Indication: PRODUCT USED FOR UNKNOWN INDICATION
     Route: 065
  3. LEXAPRO [Concomitant]
     Indication: NERVOUSNESS
     Route: 065
  4. LEXAPRO [Concomitant]
     Indication: DEPRESSION
     Route: 065

REACTIONS (8)
  - Loss of consciousness [Recovered/Resolved]
  - Pneumonia [Recovered/Resolved]
  - Fall [Recovered/Resolved]
  - Feeling abnormal [Recovered/Resolved]
  - Hyperhidrosis [Recovered/Resolved]
  - Product quality issue [Unknown]
  - Wrong technique in drug usage process [Unknown]
  - Wrong technique in drug usage process [Not Recovered/Not Resolved]
